FAERS Safety Report 8608021-X (Version None)
Quarter: 2012Q3

REPORT INFORMATION
  Report Type: 
  Country: None (occurrence: None)
  Receive Date: 20120821
  Receipt Date: 20120820
  Transmission Date: 20120928
  Serious: Yes (Death, Other)
  Sender: FDA-Public Use
  Company Number: FI-ABBOTT-11P-055-0728519-00

PATIENT
  Sex: Female

DRUGS (2)
  1. HUMIRA [Suspect]
     Indication: RHEUMATOID ARTHRITIS
     Route: 058
     Dates: start: 20050824
  2. METHOTREXATE [Concomitant]
     Indication: PRODUCT USED FOR UNKNOWN INDICATION
     Route: 048

REACTIONS (24)
  - CARDIAC ARREST [None]
  - INFLUENZA [None]
  - RASH PAPULAR [None]
  - BACK PAIN [None]
  - SINUS TACHYCARDIA [None]
  - MYOCARDIAL RUPTURE [None]
  - CHOLECYSTITIS [None]
  - CARDIAC AMYLOIDOSIS [None]
  - PERICARDIAL HAEMORRHAGE [None]
  - FATIGUE [None]
  - ERUCTATION [None]
  - PYREXIA [None]
  - BILIARY COLIC [None]
  - COUGH [None]
  - CHOLELITHIASIS [None]
  - BURSA DISORDER [None]
  - WOUND [None]
  - ABDOMINAL PAIN UPPER [None]
  - REGURGITATION [None]
  - TENDERNESS [None]
  - FALL [None]
  - MYOCARDIAL INFARCTION [None]
  - CORONARY ARTERY DISEASE [None]
  - MUSCULOSKELETAL PAIN [None]
